FAERS Safety Report 18536545 (Version 2)
Quarter: 2021Q1

REPORT INFORMATION
  Report Type: Spontaneous
  Country: CO (occurrence: CO)
  Receive Date: 20201123
  Receipt Date: 20210114
  Transmission Date: 20210419
  Serious: Yes (Other)
  Sender: FDA-Public Use
  Company Number: CO-BAYER-2020-249963

PATIENT
  Age: 31 Year
  Sex: Male

DRUGS (2)
  1. KOGENATE FS [Suspect]
     Active Substance: ANTIHEMOPHILIC FACTOR, HUMAN RECOMBINANT
     Indication: FACTOR VIII DEFICIENCY
     Dosage: 2000 IU, TIW, (MONDAYS, WEDNESDAYS, AND FRIDAYS) PROPHYLAXIS
     Route: 042
  2. KOGENATE FS [Suspect]
     Active Substance: ANTIHEMOPHILIC FACTOR, HUMAN RECOMBINANT
     Indication: FACTOR VIII DEFICIENCY
     Dosage: 2000 IU, EVERY 12 HOURS, TREATMENT AND PROPHYLAXIS
     Route: 042
     Dates: start: 20200630, end: 20200703

REACTIONS (4)
  - Muscular weakness [None]
  - Haemarthrosis [None]
  - Arthralgia [None]
  - Feeling hot [None]

NARRATIVE: CASE EVENT DATE: 20200630
